FAERS Safety Report 6559015-X (Version None)
Quarter: 2010Q1

REPORT INFORMATION
  Report Type: 
  Country: None (occurrence: None)
  Receive Date: 20100129
  Receipt Date: 20100122
  Transmission Date: 20100710
  Serious: Yes (Death)
  Sender: FDA-Public Use
  Company Number: US-CELGENEUS-163-21880-10011378

PATIENT
  Sex: Male

DRUGS (4)
  1. REVLIMID [Suspect]
     Indication: MULTIPLE MYELOMA
     Route: 048
     Dates: start: 20100101
  2. THALOMID [Suspect]
     Indication: MULTIPLE MYELOMA
     Route: 048
     Dates: start: 20050301
  3. THALOMID [Suspect]
     Route: 048
     Dates: start: 20040601, end: 20050101
  4. THALOMID [Suspect]
     Route: 048
     Dates: start: 20050901, end: 20050901

REACTIONS (1)
  - DEATH [None]
